FAERS Safety Report 9182117 (Version 1)
Quarter: 2013Q1

REPORT INFORMATION
  Report Type: Spontaneous
  Country: EG (occurrence: EG)
  Receive Date: 20130322
  Receipt Date: 20130322
  Transmission Date: 20140127
  Serious: Yes (Other)
  Sender: FDA-Public Use
  Company Number: EG-JNJFOC-20130308315

PATIENT
  Sex: 0

DRUGS (7)
  1. DOXORUBICIN HYDROCHLORIDE [Suspect]
     Indication: RHABDOMYOSARCOMA
     Route: 042
  2. CARBOPLATIN [Suspect]
     Indication: RHABDOMYOSARCOMA
     Route: 065
  3. IFOSFAMIDE [Suspect]
     Indication: RHABDOMYOSARCOMA
     Route: 065
  4. ACTINOMYCIN D [Suspect]
     Indication: RHABDOMYOSARCOMA
     Route: 065
  5. ETOPOSIDE [Suspect]
     Indication: RHABDOMYOSARCOMA
     Route: 065
  6. VINCRISTINE [Suspect]
     Indication: RHABDOMYOSARCOMA
     Route: 065
  7. RADIOTHERAPY [Suspect]
     Indication: RHABDOMYOSARCOMA
     Route: 065

REACTIONS (2)
  - Haematotoxicity [Unknown]
  - Off label use [Unknown]
